FAERS Safety Report 10200375 (Version 1)
Quarter: 2014Q2

REPORT INFORMATION
  Report Type: Spontaneous
  Country: US (occurrence: US)
  Receive Date: 20140528
  Receipt Date: 20140528
  Transmission Date: 20141212
  Serious: Yes (Other)
  Sender: FDA-Public Use
  Company Number: US-AMGEN-USASP2014037588

PATIENT
  Age: 93 Year
  Sex: Female

DRUGS (1)
  1. PROLIA [Suspect]
     Indication: PRODUCT USED FOR UNKNOWN INDICATION
     Dosage: UNK
     Route: 065
     Dates: start: 201310

REACTIONS (4)
  - Tongue neoplasm malignant stage unspecified [Recovered/Resolved]
  - Transient ischaemic attack [Recovered/Resolved]
  - Haemorrhage [Unknown]
  - Blood pressure decreased [Recovered/Resolved]
